FAERS Safety Report 15233849 (Version 1)
Quarter: 2018Q3

REPORT INFORMATION
  Report Type: Spontaneous
  Country: US (occurrence: US)
  Receive Date: 20180802
  Receipt Date: 20180802
  Transmission Date: 20181010
  Serious: No
  Sender: FDA-Public Use
  Company Number: US-GLAXOSMITHKLINE-US2018134822

PATIENT
  Age: 91 Year
  Sex: Female

DRUGS (3)
  1. ADVAIR DISKUS [Suspect]
     Active Substance: FLUTICASONE PROPIONATE\SALMETEROL XINAFOATE
     Dosage: 1 PUFF(S), 1D
     Route: 055
  2. OXYGEN. [Concomitant]
     Active Substance: OXYGEN
  3. ADVAIR DISKUS [Suspect]
     Active Substance: FLUTICASONE PROPIONATE\SALMETEROL XINAFOATE
     Indication: ASTHMA
     Dosage: 1 PUFF(S), BID
     Route: 055

REACTIONS (10)
  - Asthma [Not Recovered/Not Resolved]
  - Hand fracture [Not Recovered/Not Resolved]
  - Intentional product misuse [Unknown]
  - Fatigue [Not Recovered/Not Resolved]
  - Intentional underdose [Unknown]
  - Underdose [Unknown]
  - Wrong technique in device usage process [Unknown]
  - Inappropriate schedule of drug administration [Unknown]
  - Product storage error [Unknown]
  - Dyspnoea [Not Recovered/Not Resolved]

NARRATIVE: CASE EVENT DATE: 20180725
